FAERS Safety Report 24665420 (Version 1)
Quarter: 2024Q4

REPORT INFORMATION
  Report Type: Spontaneous
  Country: US (occurrence: US)
  Receive Date: 20241126
  Receipt Date: 20241126
  Transmission Date: 20250114
  Serious: Yes (Other)
  Sender: PHARMING GROUP
  Company Number: US-PHARMING-PHAUS2024001108

PATIENT

DRUGS (1)
  1. RUCONEST [Suspect]
     Active Substance: CONESTAT ALFA
     Indication: Maternal exposure during pregnancy
     Route: 015

REACTIONS (2)
  - Foetal heart rate deceleration abnormality [Unknown]
  - Umbilical cord prolapse [Unknown]
